FAERS Safety Report 17274993 (Version 2)
Quarter: 2020Q1

REPORT INFORMATION
  Report Type: Report from Study
  Country: US (occurrence: US)
  Receive Date: 20200116
  Receipt Date: 20200311
  Transmission Date: 20200409
  Serious: Yes (Other)
  Sender: FDA-Public Use
  Company Number: US-ROCHE-2522218

PATIENT

DRUGS (9)
  1. CHLORAMBUCIL [Suspect]
     Active Substance: CHLORAMBUCIL
     Indication: CHRONIC LYMPHOCYTIC LEUKAEMIA
     Route: 065
  2. DOXORUBICIN [Suspect]
     Active Substance: DOXORUBICIN
     Indication: CHRONIC LYMPHOCYTIC LEUKAEMIA
     Route: 065
  3. BENDAMUSTINE [Suspect]
     Active Substance: BENDAMUSTINE
     Indication: CHRONIC LYMPHOCYTIC LEUKAEMIA
     Route: 065
  4. RITUXIMAB. [Suspect]
     Active Substance: RITUXIMAB
     Indication: CHRONIC LYMPHOCYTIC LEUKAEMIA
     Route: 041
  5. PREDNISONE. [Suspect]
     Active Substance: PREDNISONE
     Indication: CHRONIC LYMPHOCYTIC LEUKAEMIA
     Route: 065
  6. IBRUTINIB [Suspect]
     Active Substance: IBRUTINIB
     Indication: CHRONIC LYMPHOCYTIC LEUKAEMIA
     Route: 065
  7. CYCLOPHOSPHAMIDE. [Suspect]
     Active Substance: CYCLOPHOSPHAMIDE
     Indication: CHRONIC LYMPHOCYTIC LEUKAEMIA
     Route: 065
  8. ALEMTUZUMAB [Suspect]
     Active Substance: ALEMTUZUMAB
     Indication: CHRONIC LYMPHOCYTIC LEUKAEMIA
     Route: 065
  9. VINCRISTINE [Suspect]
     Active Substance: VINCRISTINE
     Indication: CHRONIC LYMPHOCYTIC LEUKAEMIA
     Route: 065

REACTIONS (17)
  - Colon cancer [Unknown]
  - Haematological malignancy [Unknown]
  - Acute myeloid leukaemia [Unknown]
  - Penile squamous cell carcinoma [Unknown]
  - Head and neck cancer [Unknown]
  - Pancreatic carcinoma [Unknown]
  - Prostate cancer [Unknown]
  - Richter^s syndrome [Unknown]
  - Lung neoplasm malignant [Unknown]
  - Breast cancer [Unknown]
  - Metastatic neoplasm [Unknown]
  - Renal cancer [Unknown]
  - Bladder cancer [Unknown]
  - Hepatic cancer [Unknown]
  - Skin cancer [Unknown]
  - Malignant melanoma [Unknown]
  - Sarcoma [Unknown]
